FAERS Safety Report 5146533-4 (Version None)
Quarter: 2006Q4

REPORT INFORMATION
  Report Type: 
  Country: None (occurrence: None)
  Receive Date: 20061109
  Receipt Date: 20061027
  Transmission Date: 20070319
  Serious: Yes (Disabling)
  Sender: FDA-Public Use
  Company Number: PHBS2006CH16814

PATIENT
  Age: 61 Year
  Sex: Female

DRUGS (7)
  1. ZOMETA [Suspect]
     Indication: BREAST CANCER FEMALE
     Dosage: 4 MG, QMO
     Route: 042
     Dates: end: 20060101
  2. TAMOXIFEN CITRATE [Concomitant]
     Indication: BREAST CANCER FEMALE
     Route: 065
     Dates: start: 19940101, end: 19970101
  3. FEMARA [Concomitant]
     Indication: BREAST CANCER FEMALE
     Route: 065
     Dates: start: 20000101
  4. AROMASIN [Concomitant]
     Indication: BREAST CANCER FEMALE
     Route: 065
     Dates: start: 20000101, end: 20010101
  5. NAVELBINE [Concomitant]
     Indication: BREAST CANCER FEMALE
     Route: 065
     Dates: start: 20020101, end: 20030101
  6. FASLODEX [Concomitant]
     Indication: BREAST CANCER FEMALE
     Route: 030
     Dates: start: 20030101, end: 20040101
  7. XELODA [Concomitant]
     Indication: BREAST CANCER FEMALE
     Route: 065
     Dates: start: 20030101, end: 20040101

REACTIONS (5)
  - OSTEONECROSIS [None]
  - PAIN IN JAW [None]
  - PURULENT DISCHARGE [None]
  - SINUSITIS [None]
  - SWELLING [None]
